FAERS Safety Report 21133672 (Version 1)
Quarter: 2022Q3

REPORT INFORMATION
  Report Type: Spontaneous
  Country: US (occurrence: US)
  Receive Date: 20220726
  Receipt Date: 20220726
  Transmission Date: 20221026
  Serious: Yes (Hospitalization)
  Sender: FDA-Public Use
  Company Number: US-MYLANLABS-2022M1081097

PATIENT
  Age: 35 Year
  Sex: Male
  Weight: 105 kg

DRUGS (16)
  1. FENTANYL [Suspect]
     Active Substance: FENTANYL
     Indication: General anaesthesia
     Dosage: 100 MICROGRAM
     Route: 065
  2. ROCURONIUM [Suspect]
     Active Substance: ROCURONIUM BROMIDE
     Indication: General anaesthesia
     Dosage: 100 MILLIGRAM
     Route: 065
  3. NOREPINEPHRINE [Suspect]
     Active Substance: NOREPINEPHRINE
     Indication: Hypotension
     Dosage: UNK, INFUSION
     Route: 065
  4. MIDAZOLAM [Suspect]
     Active Substance: MIDAZOLAM
     Indication: General anaesthesia
     Dosage: 2 MILLIGRAM
     Route: 065
  5. PROPOFOL [Suspect]
     Active Substance: PROPOFOL
     Indication: General anaesthesia
     Dosage: 50 MILLIGRAM
     Route: 065
  6. VASOPRESSIN [Suspect]
     Active Substance: VASOPRESSIN
     Indication: Hypotension
     Dosage: UNK (0.04 UNITS/MIN)
     Route: 065
  7. VASOPRESSIN [Suspect]
     Active Substance: VASOPRESSIN
     Indication: Hypotension
     Dosage: UNK (INTRAVENOUS INFUSION)
     Route: 065
  8. VASOPRESSIN [Suspect]
     Active Substance: VASOPRESSIN
     Dosage: UNK (BOLUSES)
     Route: 065
  9. PHENYLEPHRINE [Suspect]
     Active Substance: PHENYLEPHRINE HYDROCHLORIDE
     Indication: Hypotension
     Dosage: UNK (BOLUSES)
     Route: 065
  10. EPOPROSTENOL [Concomitant]
     Active Substance: EPOPROSTENOL
     Indication: Pulmonary arterial hypertension
     Dosage: UNK
     Route: 042
  11. EPOPROSTENOL [Concomitant]
     Active Substance: EPOPROSTENOL
     Dosage: UNK (10 NG/KG/MIN)
     Route: 042
  12. EPOPROSTENOL [Concomitant]
     Active Substance: EPOPROSTENOL
     Dosage: UNK (GRADUALLY INCREASED BACK TO 30 NG/KG/MIN)
     Route: 042
  13. SILDENAFIL [Concomitant]
     Active Substance: SILDENAFIL
     Indication: Pulmonary arterial hypertension
     Dosage: UNK
     Route: 065
  14. AMBRISENTAN [Concomitant]
     Active Substance: AMBRISENTAN
     Indication: Pulmonary arterial hypertension
     Dosage: UNK
     Route: 065
  15. EPINEPHRINE [Concomitant]
     Active Substance: EPINEPHRINE
     Indication: Product used for unknown indication
     Dosage: 0.04 UG/KG/MIN (INFUSION)
     Route: 065
  16. EPINEPHRINE [Concomitant]
     Active Substance: EPINEPHRINE
     Dosage: UNK (BOLUSES)
     Route: 065

REACTIONS (2)
  - Hypotension [Recovering/Resolving]
  - Drug ineffective [Unknown]
